FAERS Safety Report 4455985-4 (Version None)
Quarter: 2004Q3

REPORT INFORMATION
  Report Type: 
  Country: None (occurrence: None)
  Receive Date: 20040922
  Receipt Date: 20040909
  Transmission Date: 20050211
  Serious: Yes (Life-Threatening)
  Sender: FDA-Public Use
  Company Number: 379428

PATIENT
  Age: 57 Year
  Sex: Female

DRUGS (6)
  1. KREDEX [Suspect]
  2. ZYPREXA [Suspect]
     Dosage: 5MG PER DAY
     Route: 048
  3. MOPRAL [Suspect]
     Route: 048
  4. TERCIAN [Suspect]
     Route: 048
  5. FEMARA [Concomitant]
  6. TRIATEC [Concomitant]

REACTIONS (10)
  - ABDOMINAL PAIN [None]
  - ABDOMINAL PAIN UPPER [None]
  - BLOOD GLUCOSE INCREASED [None]
  - DIABETES MELLITUS [None]
  - HEPATIC STEATOSIS [None]
  - HYPOALBUMINAEMIA [None]
  - HYPOVOLAEMIC SHOCK [None]
  - INFLAMMATION [None]
  - KETOACIDOSIS [None]
  - PANCREATITIS NECROTISING [None]
